FAERS Safety Report 4706935-4 (Version None)
Quarter: 2005Q3

REPORT INFORMATION
  Report Type: 
  Country: None (occurrence: None)
  Receive Date: 20050706
  Receipt Date: 20041227
  Transmission Date: 20060218
  Serious: Yes (Hospitalization)
  Sender: FDA-Public Use
  Company Number: 200510088JP

PATIENT
  Age: 80 Year
  Sex: Male

DRUGS (4)
  1. KETEK [Suspect]
     Indication: LARYNGOPHARYNGITIS
     Route: 048
     Dates: start: 20041221, end: 20041222
  2. CODEINE PHOSPHATE [Concomitant]
     Dates: start: 20041221, end: 20041222
  3. BROCIN [Concomitant]
     Dates: start: 20041221, end: 20041222
  4. LOXONIN [Concomitant]
     Dosage: DOSE: 3TABLETS
     Dates: start: 20041221, end: 20041222

REACTIONS (4)
  - DEHYDRATION [None]
  - DIARRHOEA [None]
  - NAUSEA [None]
  - VOMITING [None]
